FAERS Safety Report 6735242-3 (Version None)
Quarter: 2010Q2

REPORT INFORMATION
  Report Type: 
  Country: None (occurrence: None)
  Receive Date: 20100513
  Receipt Date: 20090507
  Transmission Date: 20101027
  Serious: Yes (Other)
  Sender: FDA-Public Use
  Company Number: US-1169558

PATIENT
  Age: 75 Year

DRUGS (1)
  1. TRAVATAN [Suspect]
     Dosage: (OPHTHALMIC)

REACTIONS (2)
  - ANGINA PECTORIS [None]
  - CHEST PAIN [None]
